FAERS Safety Report 8344282 (Version 2)
Quarter: 2012Q4

REPORT INFORMATION
  Report Type: 
  Country: US (occurrence: US)
  Receive Date: 20120119
  Receipt Date: 20120926
  Transmission Date: 20130627
  Serious: Yes (Other)
  Sender: FDA-Public Use
  Company Number: US-US-EMD SERONO, INC.-7107344

PATIENT
  Age: 33 None
  Sex: Female
  Weight: 73 kg

DRUGS (3)
  1. REBIF [Suspect]
     Indication: MULTIPLE SCLEROSIS
     Route: 058
     Dates: start: 200905, end: 20111115
  2. REBIF [Suspect]
     Route: 058
     Dates: start: 20111202
  3. IBUPROFEN [Concomitant]
     Indication: PAIN
     Route: 048

REACTIONS (7)
  - Autoimmune thyroiditis [Recovering/Resolving]
  - Burning sensation [Recovered/Resolved]
  - Hypersensitivity [Recovered/Resolved]
  - Pain in extremity [Recovered/Resolved]
  - Arthralgia [Recovered/Resolved]
  - Injection site erythema [Unknown]
  - Influenza like illness [Unknown]
